FAERS Safety Report 7829011-0 (Version None)
Quarter: 2011Q4

REPORT INFORMATION
  Report Type: 
  Country: None (occurrence: None)
  Receive Date: 20111020
  Receipt Date: 20111018
  Transmission Date: 20120403
  Serious: Yes (Death, Life-Threatening, Hospitalization, Other)
  Sender: FDA-Public Use
  Company Number: DE-ELI_LILLY_AND_COMPANY-DE201108000633

PATIENT
  Age: 73 Year
  Sex: Male
  Weight: 103 kg

DRUGS (11)
  1. BYETTA [Suspect]
     Dosage: 10 UG, UNK
     Route: 058
  2. NEBIVOLOL HCL [Concomitant]
     Indication: BLOOD PRESSURE
     Dosage: 5 MG, EACH MORNING
  3. OLMESARTAN MEDOXOMIL [Concomitant]
     Indication: BLOOD PRESSURE
     Dosage: 20 MG, EACH MORNING
  4. PROTAPHANE [Concomitant]
  5. AMLODIPINE BESYLATE [Concomitant]
     Indication: BLOOD PRESSURE
     Dosage: 5 MG, BID
  6. HYDROCHLOROTHIAZIDE [Concomitant]
     Dosage: 12.5 DF, UNK
  7. LEVOTHYROXINE SODIUM [Concomitant]
     Indication: THYROID DISORDER
     Dosage: 125 UG, EACH MORNING
  8. BYETTA [Suspect]
     Indication: TYPE 2 DIABETES MELLITUS
     Dosage: 5 UG, UNK
     Route: 058
     Dates: start: 20100805
  9. METFORMIN HCL [Concomitant]
     Indication: DIABETES MELLITUS
     Dosage: 1000 MG, BID
  10. SIMVASTATIN [Concomitant]
     Dosage: UNK, EACH EVENING
  11. BYETTA [Suspect]
     Dosage: UNK, UNKNOWN
     Dates: end: 20101101

REACTIONS (8)
  - CIRCULATORY COLLAPSE [None]
  - AORTIC ANEURYSM [None]
  - NAUSEA [None]
  - METASTASES TO LIVER [None]
  - HYPOTENSION [None]
  - HYPERTENSION [None]
  - PANCREATIC CARCINOMA [None]
  - RENAL FAILURE ACUTE [None]
